FAERS Safety Report 4507223-1 (Version None)
Quarter: 2004Q4

REPORT INFORMATION
  Report Type: 
  Country: None (occurrence: None)
  Receive Date: 20041025
  Receipt Date: 20040521
  Transmission Date: 20050328
  Serious: Yes (Hospitalization)
  Sender: FDA-Public Use
  Company Number: US-JNJFOC-20040505207

PATIENT
  Age: 77 Year
  Sex: Female
  Weight: 73.4827 kg

DRUGS (6)
  1. INFLIXIMAB  (INFLIXIMAB, RECOMBINANT) LYOPHILIZED POWDER [Suspect]
     Indication: RHEUMATOID ARTHRITIS
     Dosage: INTRAVENOUS
     Route: 042
     Dates: start: 20030521
  2. SOTALOL HCL [Concomitant]
  3. PREVACID [Concomitant]
  4. MONOPRIL [Concomitant]
  5. PREDNISONE [Concomitant]
  6. PROCRIT [Concomitant]

REACTIONS (1)
  - CELLULITIS [None]
